FAERS Safety Report 24196056 (Version 2)
Quarter: 2024Q4

REPORT INFORMATION
  Report Type: Report from Study
  Country: US (occurrence: US)
  Receive Date: 20240809
  Receipt Date: 20241111
  Transmission Date: 20250115
  Serious: Yes (Hospitalization, Other)
  Sender: BAUSCH AND LOMB
  Company Number: US-BAUSCH-BL-2024-012021

PATIENT
  Age: 65 Year
  Sex: Female

DRUGS (2)
  1. XIFAXAN [Suspect]
     Active Substance: RIFAXIMIN
     Indication: Product used for unknown indication
     Dosage: 30 DAYS
     Route: 048
     Dates: end: 202402
  2. XIFAXAN [Suspect]
     Active Substance: RIFAXIMIN
     Route: 048
     Dates: start: 2024

REACTIONS (13)
  - Loss of consciousness [Unknown]
  - Rib fracture [Unknown]
  - Concussion [Unknown]
  - Post-traumatic amnestic disorder [Unknown]
  - Hepatic encephalopathy [Unknown]
  - Fall [Unknown]
  - Lethargy [Unknown]
  - Ammonia increased [Unknown]
  - Confusional state [Unknown]
  - Decreased appetite [Unknown]
  - Inability to afford medication [Unknown]
  - Insurance issue [Unknown]
  - Therapy interrupted [Unknown]

NARRATIVE: CASE EVENT DATE: 20240101
